FAERS Safety Report 7655077-7 (Version None)
Quarter: 2011Q3

REPORT INFORMATION
  Report Type: 
  Country: None (occurrence: None)
  Receive Date: 20110728
  Receipt Date: 20110714
  Transmission Date: 20111222
  Serious: Yes (Hospitalization, Other)
  Sender: FDA-Public Use
  Company Number: DSJ-2011-14655

PATIENT
  Age: 7 Decade
  Sex: Female

DRUGS (10)
  1. DOMPERIDONE (DOMPERIDONE) (DOMPERIDONE) [Concomitant]
  2. INDAPAMIDE [Concomitant]
  3. FIBRINOLYSIN/DEOXYRIBONUCLEASE/CHLORAMPHENICOL [Concomitant]
  4. BENICAR [Suspect]
     Indication: HYPERTENSION
     Dosage: 20/5 MG (1 IN 1 D), PER ORAL, 40/5 MG (1 IN 1 D), PER ORAL
     Route: 048
     Dates: start: 20090101
  5. BROMAZEPAM (BROMAZEPAM) (BROMAZEPAM) [Concomitant]
  6. CALCIUM CARBONATE/VITAMIN D (COLECALFEROL, CALCIUM CARBONATE) (COLECAL [Concomitant]
  7. RIFAMYCIN (RIFAMYCIN) (RIFAMYCIN) [Concomitant]
  8. HUMAN INSULIN (INSULIN HUMAN) (INSULIN HUMAN) [Concomitant]
  9. SODIUM PICOSULPHATE/CASSIA SENNA/POLYGONUM PUNCTATION/COLLINSONIA CANA [Concomitant]
  10. PANTOPRAZOLE (PANTOPRAZOLE) (PANTOPRAZOLE) [Concomitant]

REACTIONS (9)
  - VISUAL ACUITY REDUCED [None]
  - VENOUS THROMBOSIS [None]
  - FALL [None]
  - HEADACHE [None]
  - CHILLS [None]
  - DRUG INEFFECTIVE [None]
  - INTRAOCULAR PRESSURE INCREASED [None]
  - PAIN [None]
  - ASTHENIA [None]
